FAERS Safety Report 6070081-0 (Version None)
Quarter: 2009Q1

REPORT INFORMATION
  Report Type: 
  Country: None (occurrence: None)
  Receive Date: 20090203
  Receipt Date: 20090118
  Transmission Date: 20090719
  Serious: Yes (Hospitalization)
  Sender: FDA-Public Use
  Company Number: 2009S1001131

PATIENT
  Age: 58 Year
  Sex: Female

DRUGS (2)
  1. PERGOLIDE MESYLATE [Suspect]
     Indication: PARKINSON'S DISEASE
  2. CITALOPRAM HYDROBROMIDE [Suspect]
     Indication: ANXIETY DISORDER

REACTIONS (4)
  - AORTIC VALVE INCOMPETENCE [None]
  - CARDIAC FAILURE [None]
  - MITRAL VALVE DISEASE [None]
  - TRICUSPID VALVE INCOMPETENCE [None]
